FAERS Safety Report 4610191-5 (Version None)
Quarter: 2005Q2

REPORT INFORMATION
  Report Type: 
  Country: None (occurrence: None)
  Receive Date: 20050301
  Receipt Date: 20041112
  Transmission Date: 20051028
  Serious: No
  Sender: FDA-Public Use
  Company Number: WAES 0411USA02372

PATIENT
  Age: 55 Year
  Sex: Female

DRUGS (3)
  1. ZETIA [Suspect]
     Indication: HYPERCHOLESTEROLAEMIA
     Dosage: 10 MG DAILY PO
     Route: 048
     Dates: start: 20031101, end: 20031201
  2. LOPID [Concomitant]
  3. WELCHOL [Concomitant]

REACTIONS (1)
  - HYPOGLYCAEMIA [None]
